FAERS Safety Report 7771870-4 (Version None)
Quarter: 2011Q3

REPORT INFORMATION
  Report Type: 
  Country: None (occurrence: None)
  Receive Date: 20110922
  Receipt Date: 20110607
  Transmission Date: 20111222
  Serious: No
  Sender: FDA-Public Use
  Company Number: US-ASTRAZENECA-2011SE34808

PATIENT
  Age: 53 Year
  Sex: Male
  Weight: 79.4 kg

DRUGS (2)
  1. TRAZODONE HCL [Concomitant]
     Indication: SLEEP DISORDER
  2. SEROQUEL XR [Suspect]
     Indication: BIPOLAR DISORDER
     Dosage: DAILY
     Route: 048
     Dates: start: 20110401, end: 20110501

REACTIONS (4)
  - NERVOUSNESS [None]
  - INSOMNIA [None]
  - DYSKINESIA [None]
  - DECREASED APPETITE [None]
